FAERS Safety Report 4577884-X (Version None)
Quarter: 2005Q1

REPORT INFORMATION
  Report Type: 
  Country: None (occurrence: None)
  Receive Date: 20050209
  Receipt Date: 20050120
  Transmission Date: 20050727
  Serious: Yes (Hospitalization)
  Sender: FDA-Public Use
  Company Number: JP_050105689

PATIENT
  Age: 54 Year
  Sex: Female
  Weight: 33 kg

DRUGS (10)
  1. GEMZAR [Suspect]
     Indication: PANCREATIC CARCINOMA STAGE IV
     Dosage: 1000 MG
     Dates: start: 20031027, end: 20031027
  2. UFT [Concomitant]
  3. NEUROTROPIN (ORGAN LYSATE, STANDARDIZED) [Concomitant]
  4. TOLEDOMIN (MILNACIPRAN HYDROCHLORIDE) [Concomitant]
  5. GRANDAXIN (TOFISOPAM) [Concomitant]
  6. DOGMATYL (SULPIRIDE) [Concomitant]
  7. HALCION [Concomitant]
  8. BERIZYM [Concomitant]
  9. BIOFERMIN [Concomitant]
  10. MS CONTIN [Concomitant]

REACTIONS (6)
  - DECREASED APPETITE [None]
  - GENERAL PHYSICAL HEALTH DETERIORATION [None]
  - MALIGNANT NEOPLASM PROGRESSION [None]
  - PANCREATIC CARCINOMA STAGE IV [None]
  - PLEURISY [None]
  - PYREXIA [None]
